FAERS Safety Report 9471013 (Version 1)
Quarter: 2013Q3

REPORT INFORMATION
  Report Type: Spontaneous
  Country: IL (occurrence: None)
  Receive Date: 20130815
  Receipt Date: 20130815
  Transmission Date: 20140515
  Serious: Yes (Hospitalization)
  Sender: FDA-Public Use
  Company Number: FK201303194

PATIENT
  Age: 7 Year
  Sex: Female

DRUGS (3)
  1. VALPROATE (MANUFACTURER UNKNOWN) (VALPROATE SODIUM) (VALPROATE SODIUM) [Suspect]
     Indication: EPILEPSY
     Dosage: 250 MG/ 5 ML FREQUENCY
  2. SULTHIAME (SULTIAME) [Concomitant]
  3. CLONAZEPAM (CLONAZEPAM) (CLONAZEPAM) [Concomitant]

REACTIONS (3)
  - Accidental overdose [None]
  - Toxicity to various agents [None]
  - Thrombocytopenia [None]
